FAERS Safety Report 20897949 (Version 1)
Quarter: 2022Q2

REPORT INFORMATION
  Report Type: Spontaneous
  Country: US (occurrence: US)
  Receive Date: 20220531
  Receipt Date: 20220531
  Transmission Date: 20220721
  Serious: No
  Sender: FDA-Public Use
  Company Number: US-PFIZER INC-202200772717

PATIENT
  Age: 75 Year
  Sex: Male
  Weight: 79.38 kg

DRUGS (7)
  1. PAXLOVID [Suspect]
     Active Substance: NIRMATRELVIR\RITONAVIR
     Indication: COVID-19 treatment
     Dosage: 3 DOSES OF [PF-07321332] 450 MG
  2. MORNIFLUMATE [Concomitant]
     Active Substance: MORNIFLUMATE
     Indication: Prostatic disorder
     Dosage: DOCTOR ADVISED TO STOP WHILE ON PAXLOVID
  3. CARBIDOPA [Concomitant]
     Active Substance: CARBIDOPA
     Indication: Parkinsonism
     Dosage: 3X/DAY (1 AND A HALF TABLETS)
  4. METOPROLOL [Concomitant]
     Active Substance: METOPROLOL
     Indication: Cardiac disorder
     Dosage: 5 MG, 1X/DAY
  5. LISINOPRIL [Concomitant]
     Active Substance: LISINOPRIL
     Indication: Cardiac disorder
     Dosage: 5 MG, 1X/DAY
  6. FINASTERIDE [Concomitant]
     Active Substance: FINASTERIDE
     Indication: Prostatic disorder
     Dosage: 5 MG, 1X/DAY
  7. ELIQUIS [Concomitant]
     Active Substance: APIXABAN
     Indication: Cardiac assistance device user
     Dosage: UNK

REACTIONS (3)
  - Product use issue [Unknown]
  - Wrong dose [Unknown]
  - Incorrect dose administered [Unknown]
